FAERS Safety Report 5035339-2 (Version None)
Quarter: 2006Q2

REPORT INFORMATION
  Report Type: 
  Country: None (occurrence: None)
  Receive Date: 20060627
  Receipt Date: 20060613
  Transmission Date: 20061013
  Serious: Yes (Hospitalization)
  Sender: FDA-Public Use
  Company Number: US-KINGPHARMUSA00001-K200600769

PATIENT
  Age: 19 Year
  Sex: Female

DRUGS (2)
  1. BICILLIN L-A [Suspect]
     Indication: PHARYNGITIS STREPTOCOCCAL
     Dosage: 1,200,000 UNITS, SINGLE
     Route: 030
  2. PENICILLIN V POTASSIUM [Suspect]
     Indication: PHARYNGITIS STREPTOCOCCAL
     Dosage: 500 MG, BID
     Route: 048

REACTIONS (18)
  - ARTHRALGIA [None]
  - BLOOD CREATININE INCREASED [None]
  - C-REACTIVE PROTEIN INCREASED [None]
  - CHILLS [None]
  - COMPUTERISED TOMOGRAM ABNORMAL [None]
  - GLOMERULONEPHRITIS ACUTE [None]
  - HAEMATOCRIT DECREASED [None]
  - HAEMOGLOBIN DECREASED [None]
  - HYPOXIA [None]
  - LEUKOCYTOSIS [None]
  - LYMPHADENOPATHY [None]
  - MYALGIA [None]
  - PHARYNGEAL ERYTHEMA [None]
  - PLEURAL EFFUSION [None]
  - PYREXIA [None]
  - RASH MORBILLIFORM [None]
  - RED BLOOD CELL SEDIMENTATION RATE INCREASED [None]
  - SERUM SICKNESS [None]
